FAERS Safety Report 21755816 (Version 2)
Quarter: 2022Q4

REPORT INFORMATION
  Report Type: Report from Study
  Country: AU (occurrence: AU)
  Receive Date: 20221220
  Receipt Date: 20221227
  Transmission Date: 20230113
  Serious: Yes (Life-Threatening, Hospitalization)
  Sender: FDA-Public Use
  Company Number: AU-PFIZER INC-PV202200120905

PATIENT
  Age: 27 Year
  Sex: Male
  Weight: 68.9 kg

DRUGS (19)
  1. IRINOTECAN HYDROCHLORIDE [Suspect]
     Active Substance: IRINOTECAN HYDROCHLORIDE
     Indication: Ewing^s sarcoma
     Dosage: UNK, CYCLIC (DAYS 1 TO 5 OF A 21 DAY CYCLE)
     Route: 042
     Dates: start: 20221031
  2. ABEMACICLIB [Suspect]
     Active Substance: ABEMACICLIB
     Indication: Ewing^s sarcoma
     Dosage: TWICE DAILY
     Route: 048
     Dates: start: 20221031, end: 20221130
  3. TEMOZOLOMIDE [Suspect]
     Active Substance: TEMOZOLOMIDE
     Indication: Ewing^s sarcoma
     Dosage: 180 MG, CYCLIC (1 TO 5 OF A 21 DAY CYCLE)
     Route: 048
     Dates: start: 20221031
  4. APIXABAN [Concomitant]
     Active Substance: APIXABAN
     Dosage: UNK
     Dates: start: 20210301
  5. MAGNESIUM ASPARTATE [Concomitant]
     Active Substance: MAGNESIUM ASPARTATE
     Dosage: UNK
     Dates: start: 20220501
  6. NALOXONE HYDROCHLORIDE\OXYCODONE HYDROCHLORIDE [Concomitant]
     Active Substance: NALOXONE HYDROCHLORIDE\OXYCODONE HYDROCHLORIDE
     Dosage: UNK
     Dates: start: 20221005
  7. PANTOPRAZOLE SODIUM [Concomitant]
     Active Substance: PANTOPRAZOLE SODIUM
     Dosage: UNK
     Dates: start: 20190501
  8. PARACETAMOL OSTEO [Concomitant]
     Dosage: UNK
     Dates: start: 20211117
  9. TEMAZEPAM [Concomitant]
     Active Substance: TEMAZEPAM
     Dosage: UNK
     Dates: start: 20221031
  10. DEXAMETHASONE [Concomitant]
     Active Substance: DEXAMETHASONE
     Dosage: UNK
     Dates: start: 20221031
  11. GRANISETRON [Concomitant]
     Active Substance: GRANISETRON
     Dosage: UNK
     Dates: start: 20221031
  12. CELECOXIB [Concomitant]
     Active Substance: CELECOXIB
     Dosage: UNK
     Dates: start: 20221110
  13. LOPERAMIDE [Concomitant]
     Active Substance: LOPERAMIDE
     Dosage: UNK
     Dates: start: 20221031
  14. METOCLOPRAMIDE [Concomitant]
     Active Substance: METOCLOPRAMIDE
     Dosage: UNK
     Dates: start: 20221031
  15. METHYL SALICYLATE\PEPPERMINT OIL\SODIUM BICARBONATE\SODIUM CHLORIDE [Concomitant]
     Active Substance: METHYL SALICYLATE\PEPPERMINT OIL\SODIUM BICARBONATE\SODIUM CHLORIDE
     Dosage: UNK
     Dates: start: 20221110
  16. ATROPINE [Concomitant]
     Active Substance: ATROPINE
     Dosage: UNK
     Dates: start: 20221102
  17. SULFAMETHOXAZOLE AND TRIMETHOPRIM [Concomitant]
     Active Substance: SULFAMETHOXAZOLE\TRIMETHOPRIM
     Dosage: UNK
     Dates: start: 20221031
  18. SODIUM HYALURONATE [Concomitant]
     Active Substance: HYALURONATE SODIUM
     Dosage: UNK
     Dates: start: 20211117
  19. PREGABALIN [Concomitant]
     Active Substance: PREGABALIN
     Dosage: UNK
     Dates: start: 20190501

REACTIONS (4)
  - Clostridium difficile infection [Unknown]
  - Neutrophil count decreased [Recovered/Resolved]
  - Diarrhoea [Unknown]
  - Abdominal pain [Unknown]

NARRATIVE: CASE EVENT DATE: 20221129
